FAERS Safety Report 8954361 (Version 2)
Quarter: 2013Q2

REPORT INFORMATION
  Report Type: Spontaneous
  Country: US (occurrence: US)
  Receive Date: 20121210
  Receipt Date: 20130612
  Transmission Date: 20140414
  Serious: Yes (Hospitalization)
  Sender: FDA-Public Use
  Company Number: US-AMGEN-USASP2012078124

PATIENT
  Age: 58 Year
  Sex: Female

DRUGS (8)
  1. NPLATE [Suspect]
     Indication: IDIOPATHIC THROMBOCYTOPENIC PURPURA
     Dosage: UNK
     Dates: start: 20060606
  2. ZIAC [Concomitant]
     Dosage: 6.5 UNK, UNK
  3. ZOLOFT [Concomitant]
  4. XANAX [Concomitant]
  5. LEVOTHYROXINE [Concomitant]
  6. JANUVIA [Concomitant]
  7. MACRODANTIN [Concomitant]
     Indication: URINARY TRACT INFECTION
  8. JUICE PLUS [Concomitant]

REACTIONS (6)
  - Sinusitis [Unknown]
  - Pneumonia [Unknown]
  - Urinary tract infection [Unknown]
  - Immune system disorder [Unknown]
  - Malaise [Unknown]
  - Hypersensitivity [Unknown]
